FAERS Safety Report 21018671 (Version 1)
Quarter: 2022Q2

REPORT INFORMATION
  Report Type: Spontaneous
  Country: ES (occurrence: ES)
  Receive Date: 20220628
  Receipt Date: 20220628
  Transmission Date: 20220720
  Serious: Yes (Hospitalization)
  Sender: FDA-Public Use
  Company Number: None

PATIENT
  Age: 37 Year
  Sex: Male

DRUGS (6)
  1. PREGABALIN [Suspect]
     Active Substance: PREGABALIN
     Indication: Pain
     Dosage: FREQ:12 H;
     Route: 048
     Dates: start: 20220509, end: 20220510
  2. FENTANYL [Suspect]
     Active Substance: FENTANYL
     Indication: Pain
     Route: 062
     Dates: start: 20220509, end: 20220510
  3. DEXKETOPROFEN TROMETAMOL [Concomitant]
     Active Substance: DEXKETOPROFEN TROMETAMOL
     Indication: Pain
     Dosage: 75 MG, 1X/DAY
     Route: 048
     Dates: start: 20220504
  4. MORPHINE [Concomitant]
     Active Substance: MORPHINE
     Indication: Pain
     Dosage: 12 MG, AS NEEDED
     Route: 058
     Dates: start: 20220504
  5. PREGABALIN [Concomitant]
     Active Substance: PREGABALIN
     Indication: Pain
     Dosage: 75 MG, FREQ:12 H
     Route: 048
     Dates: start: 20220506, end: 20220508
  6. LORAZEPAM [Concomitant]
     Active Substance: LORAZEPAM
     Indication: Insomnia
     Dosage: 2 MG, 1X/DAY
     Route: 048
     Dates: start: 20200228

REACTIONS (2)
  - Dizziness [Recovering/Resolving]
  - Nervousness [Recovering/Resolving]

NARRATIVE: CASE EVENT DATE: 20220510
